FAERS Safety Report 5926484-5 (Version None)
Quarter: 2008Q4

REPORT INFORMATION
  Report Type: 
  Country: None (occurrence: None)
  Receive Date: 20081022
  Receipt Date: 20081015
  Transmission Date: 20090506
  Serious: Yes (Other)
  Sender: FDA-Public Use
  Company Number: PHHY2008DE24937

PATIENT
  Age: 8 Month
  Sex: Male

DRUGS (2)
  1. TRILEPTAL [Suspect]
     Indication: CONVULSION
     Dosage: UNK
     Dates: start: 20080922
  2. LUMINALETTEN [Suspect]
     Indication: CONVULSION
     Dosage: UNK
     Route: 048

REACTIONS (3)
  - CONVULSION [None]
  - HEAD TITUBATION [None]
  - MUSCLE SPASMS [None]
